FAERS Safety Report 14671158 (Version 1)
Quarter: 2018Q1

REPORT INFORMATION
  Report Type: Spontaneous
  Country: US (occurrence: US)
  Receive Date: 20180322
  Receipt Date: 20180322
  Transmission Date: 20180509
  Serious: Yes (Hospitalization)
  Sender: FDA-Public Use
  Company Number: None

PATIENT
  Age: 3 Year
  Sex: Female
  Weight: 10.7 kg

DRUGS (2)
  1. DEXAMETHASONE. [Suspect]
     Active Substance: DEXAMETHASONE
     Dates: end: 20180319
  2. CYTARABINE. [Suspect]
     Active Substance: CYTARABINE
     Dates: end: 20180305

REACTIONS (7)
  - Gastrointestinal disorder [None]
  - Vomiting [None]
  - Hyponatraemia [None]
  - Lethargy [None]
  - Diarrhoea [None]
  - Metabolic acidosis [None]
  - Blood urea increased [None]

NARRATIVE: CASE EVENT DATE: 20180319
